FAERS Safety Report 12471800 (Version 1)
Quarter: 2016Q2

REPORT INFORMATION
  Report Type: Spontaneous
  Country: US (occurrence: None)
  Receive Date: 20160615
  Receipt Date: 20160615
  Transmission Date: 20160815
  Serious: Yes (Hospitalization)
  Sender: FDA-Public Use
  Company Number: None

PATIENT
  Age: 68 Year
  Sex: Male
  Weight: 103.5 kg

DRUGS (11)
  1. LANTUS [Concomitant]
     Active Substance: INSULIN GLARGINE
  2. METFORMIN [Concomitant]
     Active Substance: METFORMIN HYDROCHLORIDE
  3. XARELTO [Suspect]
     Active Substance: RIVAROXABAN
     Indication: PULMONARY EMBOLISM
     Route: 048
  4. ASPIRIN EC [Suspect]
     Active Substance: ASPIRIN
     Indication: CORONARY ARTERY DISEASE
     Route: 048
  5. PREVACID [Concomitant]
     Active Substance: LANSOPRAZOLE
  6. HUMALOG [Concomitant]
     Active Substance: INSULIN LISPRO
  7. FLRMAX [Concomitant]
  8. PROTONIX [Concomitant]
     Active Substance: PANTOPRAZOLE SODIUM
  9. LIPITOR [Concomitant]
     Active Substance: ATORVASTATIN CALCIUM
  10. LOPRESSOR [Concomitant]
     Active Substance: METOPROLOL TARTRATE
  11. ALTACE [Concomitant]
     Active Substance: RAMIPRIL

REACTIONS (4)
  - Haemoptysis [None]
  - Pulmonary embolism [None]
  - Deep vein thrombosis [None]
  - Haematuria [None]

NARRATIVE: CASE EVENT DATE: 20151118
